FAERS Safety Report 17039316 (Version 1)
Quarter: 2019Q4

REPORT INFORMATION
  Report Type: Other
  Country: CA (occurrence: CA)
  Receive Date: 20191115
  Receipt Date: 20191115
  Transmission Date: 20200122
  Serious: Yes (Hospitalization, Disabling, Other)
  Sender: FDA-Public Use
  Company Number: CA-PFIZER INC-2019488929

PATIENT
  Age: 57 Year
  Sex: Male

DRUGS (28)
  1. MEROPENEM. [Interacting]
     Active Substance: MEROPENEM
     Indication: BACTERIAL INFECTION
  2. PIPERACILLIN/TAZOBACTAM [Interacting]
     Active Substance: PIPERACILLIN SODIUM\TAZOBACTAM SODIUM
     Indication: ABSCESS NECK
  3. PYRAZINAMIDE. [Interacting]
     Active Substance: PYRAZINAMIDE
     Indication: TUBERCULOSIS
     Dosage: UNK
  4. MEROPENEM. [Interacting]
     Active Substance: MEROPENEM
     Indication: CONDITION AGGRAVATED
     Dosage: 1 G, 3X/DAY
     Route: 042
  5. IMIPENEM [Interacting]
     Active Substance: IMIPENEM
     Indication: MYCOBACTERIUM ABSCESSUS INFECTION
     Dosage: 500 MG, CYCLIC(4 DAILY)
     Route: 042
  6. CLARITHROMYCIN. [Interacting]
     Active Substance: CLARITHROMYCIN
     Indication: MYCOBACTERIUM ABSCESSUS INFECTION
     Dosage: 500 MG, 2X/DAY
     Route: 048
  7. RIFAMPIN. [Interacting]
     Active Substance: RIFAMPIN
     Indication: MYCOBACTERIAL INFECTION
  8. MEROPENEM. [Interacting]
     Active Substance: MEROPENEM
     Indication: ABSCESS NECK
  9. IMIPENEM [Interacting]
     Active Substance: IMIPENEM
     Indication: MYCOBACTERIAL INFECTION
  10. PYRAZINAMIDE. [Interacting]
     Active Substance: PYRAZINAMIDE
     Indication: MYCOBACTERIAL INFECTION
  11. VANCOMYCIN HCL [Suspect]
     Active Substance: VANCOMYCIN HYDROCHLORIDE
     Indication: CONDITION AGGRAVATED
     Dosage: 1.25 G, 2X/DAY
     Route: 042
  12. ETHAMBUTOL [Interacting]
     Active Substance: ETHAMBUTOL HYDROCHLORIDE
     Indication: MYCOBACTERIAL INFECTION
  13. PENICILLIN G [BENZYLPENICILLIN] [Interacting]
     Active Substance: PENICILLIN G
     Indication: DENTAL OPERATION
     Dosage: UNK
     Route: 048
  14. PENICILLIN G [BENZYLPENICILLIN] [Interacting]
     Active Substance: PENICILLIN G
     Indication: ANTIBIOTIC PROPHYLAXIS
  15. RIFAMPIN. [Interacting]
     Active Substance: RIFAMPIN
     Indication: TUBERCULOSIS
     Dosage: UNK
  16. ISONIAZID. [Concomitant]
     Active Substance: ISONIAZID
     Indication: TUBERCULOSIS
     Dosage: UNK
  17. TAZOBACTAM [Concomitant]
     Active Substance: TAZOBACTAM
     Indication: ABSCESS NECK
     Dosage: 4.5 G, 3X/DAY
     Route: 042
  18. VANCOMYCIN HCL [Interacting]
     Active Substance: VANCOMYCIN HYDROCHLORIDE
     Indication: ABSCESS NECK
  19. AMIKACIN SULFATE. [Interacting]
     Active Substance: AMIKACIN SULFATE
     Indication: MYCOBACTERIUM ABSCESSUS INFECTION
     Dosage: 900 MG, 1X/DAY
     Route: 042
  20. AMIKACIN SULFATE. [Interacting]
     Active Substance: AMIKACIN SULFATE
     Indication: MYCOBACTERIAL INFECTION
  21. ETHAMBUTOL [Interacting]
     Active Substance: ETHAMBUTOL HYDROCHLORIDE
     Indication: TUBERCULOSIS
     Dosage: 500 MG, UNK
     Route: 042
  22. WARFARIN [Interacting]
     Active Substance: WARFARIN
     Indication: ANTICOAGULANT THERAPY
  23. CILASTATIN/IMIPENEM [Interacting]
     Active Substance: CILASTATIN SODIUM\IMIPENEM
     Indication: MYCOBACTERIUM ABSCESSUS INFECTION
     Dosage: 500 MG, 3X/DAY
     Route: 042
  24. WARFARIN [Interacting]
     Active Substance: WARFARIN
     Indication: PERIPHERAL VASCULAR DISORDER
     Dosage: UNK
     Route: 048
  25. ISONIAZID. [Concomitant]
     Active Substance: ISONIAZID
     Indication: MYCOBACTERIAL INFECTION
  26. VANCOMYCIN HCL [Interacting]
     Active Substance: VANCOMYCIN HYDROCHLORIDE
     Indication: BACTERIAL INFECTION
  27. PIPERACILLIN/TAZOBACTAM [Interacting]
     Active Substance: PIPERACILLIN SODIUM\TAZOBACTAM SODIUM
     Indication: NONINFECTIVE SIALOADENITIS
     Dosage: 4.5 G, 3X/DAY
     Route: 042
  28. CLARITHROMYCIN. [Interacting]
     Active Substance: CLARITHROMYCIN
     Indication: MYCOBACTERIAL INFECTION

REACTIONS (8)
  - Condition aggravated [Recovered/Resolved]
  - Drug ineffective [Recovered/Resolved]
  - Drug interaction [Recovered/Resolved]
  - International normalised ratio increased [Recovered/Resolved]
  - Labelled drug-drug interaction medication error [Recovered/Resolved]
  - Gastrointestinal haemorrhage [Recovered/Resolved]
  - Ototoxicity [Recovered/Resolved]
  - Potentiating drug interaction [Recovered/Resolved]
